FAERS Safety Report 7757006-4 (Version None)
Quarter: 2011Q3

REPORT INFORMATION
  Report Type: 
  Country: None (occurrence: None)
  Receive Date: 20110916
  Receipt Date: 20110916
  Transmission Date: 20111222
  Serious: Yes (Death, Hospitalization, Other)
  Sender: FDA-Public Use
  Company Number: None

PATIENT
  Sex: Male
  Weight: 79.378 kg

DRUGS (1)
  1. AMIODARONE HCL [Suspect]
     Indication: ATRIAL FIBRILLATION
     Dosage: 200MG
     Route: 048
     Dates: start: 20110408, end: 20110608

REACTIONS (5)
  - PULMONARY TOXICITY [None]
  - INTERSTITIAL LUNG DISEASE [None]
  - BRONCHOPNEUMONIA [None]
  - PULMONARY HAEMORRHAGE [None]
  - DIFFUSE ALVEOLAR DAMAGE [None]
